FAERS Safety Report 14560676 (Version 1)
Quarter: 2018Q1

REPORT INFORMATION
  Report Type: Spontaneous
  Country: IT (occurrence: IT)
  Receive Date: 20180222
  Receipt Date: 20180222
  Transmission Date: 20180509
  Serious: Yes (Hospitalization)
  Sender: FDA-Public Use
  Company Number: IT-ASTRAZENECA-2018SE20123

PATIENT
  Age: 32 Year
  Sex: Female

DRUGS (4)
  1. QUETIAPINE. [Suspect]
     Active Substance: QUETIAPINE
     Dosage: 1500.0MG ONCE/SINGLE ADMINISTRATION
     Route: 048
  2. FLUOXETINE [Suspect]
     Active Substance: FLUOXETINE HYDROCHLORIDE
     Dosage: 560.0MG ONCE/SINGLE ADMINISTRATION
     Route: 048
  3. LAMOTRIGINE. [Suspect]
     Active Substance: LAMOTRIGINE
     Dosage: 2500.0MG UNKNOWN
     Route: 048
  4. DIAZEPAM. [Suspect]
     Active Substance: DIAZEPAM
     Dosage: 2.0DF ONCE/SINGLE ADMINISTRATION
     Route: 048

REACTIONS (2)
  - Loss of consciousness [Recovered/Resolved]
  - Drug abuse [Recovered/Resolved]

NARRATIVE: CASE EVENT DATE: 20170427
